FAERS Safety Report 9184800 (Version 2)
Quarter: 2013Q2

REPORT INFORMATION
  Report Type: Report from Study
  Country: US (occurrence: US)
  Receive Date: 20130325
  Receipt Date: 20130403
  Transmission Date: 20140414
  Serious: Yes (Hospitalization)
  Sender: FDA-Public Use
  Company Number: US-ABBOTT-13P-163-1063677-00

PATIENT
  Sex: Male
  Weight: 90.8 kg

DRUGS (7)
  1. HUMIRA [Suspect]
     Indication: CROHN^S DISEASE
     Dates: start: 2011, end: 2011
  2. HUMIRA [Suspect]
  3. HUMIRA [Suspect]
     Dates: end: 201211
  4. HUMIRA [Suspect]
     Dates: start: 201301
  5. PREDNISONE [Suspect]
     Indication: CROHN^S DISEASE
     Dosage: MASSIVE DOSES
  6. IMURAN [Concomitant]
     Indication: CROHN^S DISEASE
  7. TRIAMTERENE [Concomitant]
     Indication: HYPERTENSION

REACTIONS (4)
  - Osteoarthritis [Recovered/Resolved]
  - Osteonecrosis [Recovered/Resolved]
  - Arthralgia [Recovered/Resolved]
  - Weight bearing difficulty [Recovered/Resolved]
